FAERS Safety Report 6416635-0 (Version None)
Quarter: 2009Q4

REPORT INFORMATION
  Report Type: 
  Country: None (occurrence: None)
  Receive Date: 20091027
  Receipt Date: 20091020
  Transmission Date: 20100525
  Serious: Yes (Hospitalization)
  Sender: FDA-Public Use
  Company Number: DK-ABBOTT-09P-044-0594592-00

PATIENT
  Sex: Female

DRUGS (3)
  1. HUMIRA [Suspect]
     Indication: JUVENILE ARTHRITIS
     Route: 058
     Dates: start: 20090427, end: 20090628
  2. REMICADE [Concomitant]
     Indication: PSORIATIC ARTHROPATHY
     Route: 042
     Dates: start: 20060816, end: 20090426
  3. RITUXIMAB [Concomitant]
     Indication: PSORIATIC ARTHROPATHY
     Dosage: 1000 MG STANDARD DOSE
     Route: 042
     Dates: start: 20090709, end: 20090723

REACTIONS (3)
  - DIZZINESS [None]
  - MALAISE [None]
  - SYNCOPE [None]
